FAERS Safety Report 5654762-6 (Version None)
Quarter: 2008Q1

REPORT INFORMATION
  Report Type: 
  Country: None (occurrence: None)
  Receive Date: 20080307
  Receipt Date: 20070817
  Transmission Date: 20080703
  Serious: No
  Sender: FDA-Public Use
  Company Number: A0599188A

PATIENT
  Age: 64 Year
  Sex: Male
  Weight: 103.6 kg

DRUGS (2)
  1. REQUIP [Suspect]
     Indication: PARKINSON'S DISEASE
     Dosage: 3MG FOUR TIMES PER DAY
     Route: 048
     Dates: start: 20020606, end: 20060330
  2. SINEMET [Concomitant]

REACTIONS (8)
  - DYSPHAGIA [None]
  - EMOTIONAL DISTRESS [None]
  - FALL [None]
  - MARITAL PROBLEM [None]
  - PATHOLOGICAL GAMBLING [None]
  - PERSONALITY CHANGE [None]
  - POLLAKIURIA [None]
  - TREMOR [None]
